FAERS Safety Report 5497265-4 (Version None)
Quarter: 2007Q4

REPORT INFORMATION
  Report Type: 
  Country: None (occurrence: None)
  Receive Date: 20071025
  Receipt Date: 20061010
  Transmission Date: 20080405
  Serious: No
  Sender: FDA-Public Use
  Company Number: A0620996A

PATIENT
  Age: 77 Year
  Sex: Female
  Weight: 55.5 kg

DRUGS (5)
  1. ADVAIR DISKUS 100/50 [Suspect]
     Indication: ASTHMA
     Route: 055
     Dates: start: 20060630, end: 20060827
  2. LISINOPRIL [Concomitant]
     Indication: HYPERTENSION
     Dosage: 10MG PER DAY
     Route: 048
  3. INDAPAMIDE [Concomitant]
     Indication: HYPERTENSION
     Dosage: 1.25MG PER DAY
     Route: 048
  4. NIFEDIPINE [Concomitant]
     Indication: HYPERTENSION
     Dosage: 30MG PER DAY
     Route: 048
  5. ALBUTEROL [Concomitant]
     Indication: ASTHMA
     Route: 055
     Dates: start: 20060501

REACTIONS (3)
  - LIP SWELLING [None]
  - SWELLING FACE [None]
  - URTICARIA [None]
